FAERS Safety Report 9134391 (Version 1)
Quarter: 2013Q1

REPORT INFORMATION
  Report Type: Spontaneous
  Country: JP (occurrence: JP)
  Receive Date: 20130304
  Receipt Date: 20130304
  Transmission Date: 20140127
  Serious: Yes (Hospitalization)
  Sender: FDA-Public Use
  Company Number: JP-JNJFOC-20121211138

PATIENT
  Age: 82 Year
  Sex: Female

DRUGS (1)
  1. ITRIZOLE [Suspect]
     Indication: SYSTEMIC MYCOSIS
     Route: 048
     Dates: start: 20121211, end: 20121218

REACTIONS (1)
  - Drug eruption [Recovered/Resolved]
